FAERS Safety Report 7834874-9 (Version None)
Quarter: 2011Q4

REPORT INFORMATION
  Report Type: 
  Country: None (occurrence: None)
  Receive Date: 20111024
  Receipt Date: 20111020
  Transmission Date: 20120403
  Serious: Yes (Death)
  Sender: FDA-Public Use
  Company Number: US-JNJFOC-20101102946

PATIENT
  Sex: Female
  Weight: 62.14 kg

DRUGS (6)
  1. TRAMADOL HCL [Concomitant]
     Route: 065
  2. FENTANYL CITRATE [Suspect]
     Route: 062
  3. FENTANYL [Suspect]
     Indication: PRODUCT USED FOR UNKNOWN INDICATION
     Route: 062
  4. FENTANYL-100 [Suspect]
     Indication: PAIN
     Route: 062
  5. CARBAMAZEPINE [Concomitant]
     Route: 065
  6. FENTANYL CITRATE [Suspect]
     Indication: PAIN
     Route: 062
     Dates: start: 20060506

REACTIONS (3)
  - WRONG TECHNIQUE IN DRUG USAGE PROCESS [None]
  - TOXICITY TO VARIOUS AGENTS [None]
  - DRUG ADMINISTERED AT INAPPROPRIATE SITE [None]
